FAERS Safety Report 5805505-4 (Version None)
Quarter: 2008Q3

REPORT INFORMATION
  Report Type: 
  Country: None (occurrence: None)
  Receive Date: 20080710
  Receipt Date: 20080630
  Transmission Date: 20090109
  Serious: Yes (Other)
  Sender: FDA-Public Use
  Company Number: DE-JNJFOC-20080700142

PATIENT
  Age: 54 Year
  Sex: Male
  Weight: 95 kg

DRUGS (4)
  1. REMICADE [Suspect]
  2. REMICADE [Suspect]
     Indication: ANKYLOSING SPONDYLITIS
  3. VIANI [Concomitant]
     Indication: ASTHMA
  4. VIANI [Concomitant]
     Indication: CHRONIC OBSTRUCTIVE PULMONARY DISEASE

REACTIONS (2)
  - INFUSION RELATED REACTION [None]
  - STATUS ASTHMATICUS [None]
